FAERS Safety Report 10234244 (Version 1)
Quarter: 2014Q2

REPORT INFORMATION
  Report Type: Spontaneous
  Country: CA (occurrence: CA)
  Receive Date: 20140612
  Receipt Date: 20140612
  Transmission Date: 20141212
  Serious: Yes (Life-Threatening, Other)
  Sender: FDA-Public Use
  Company Number: CHPA2014CA007888

PATIENT
  Age: 40 Year
  Sex: Female

DRUGS (1)
  1. TRANSDERM SCOP [Suspect]
     Indication: MOTION SICKNESS
     Dosage: 2 DF, UNK
     Route: 062
     Dates: start: 20140518, end: 20140525

REACTIONS (5)
  - Feeling abnormal [Unknown]
  - Migraine [Not Recovered/Not Resolved]
  - Vomiting [Unknown]
  - Eye disorder [Not Recovered/Not Resolved]
  - Wrong technique in drug usage process [Unknown]
